FAERS Safety Report 25984938 (Version 1)
Quarter: 2025Q4

REPORT INFORMATION
  Report Type: Report from Study
  Country: US (occurrence: US)
  Receive Date: 20251031
  Receipt Date: 20251031
  Transmission Date: 20260118
  Serious: Yes (Other)
  Sender: MALLINCKRODT
  Company Number: US-MALLINCKRODT-MNK202506667

PATIENT
  Sex: Female

DRUGS (1)
  1. CORTICOTROPIN [Suspect]
     Active Substance: CORTICOTROPIN
     Indication: Pulmonary sarcoidosis
     Dosage: UNKNOWN

REACTIONS (7)
  - Macular degeneration [Unknown]
  - Cataract [Unknown]
  - Glaucoma [Unknown]
  - Feeling abnormal [Unknown]
  - Anger [Unknown]
  - Negativism [Unknown]
  - Defiant behaviour [Unknown]
